FAERS Safety Report 24043606 (Version 1)
Quarter: 2024Q3

REPORT INFORMATION
  Report Type: Report from Study
  Country: CA (occurrence: CA)
  Receive Date: 20240703
  Receipt Date: 20240703
  Transmission Date: 20241017
  Serious: Yes (Hospitalization)
  Sender: Alvotech
  Company Number: CA-JAMP PHARMA CORPORATION-2023-JAM-CA-01260

PATIENT
  Age: 70 Year
  Sex: Female

DRUGS (1)
  1. SIMLANDI [Suspect]
     Active Substance: ADALIMUMAB-RYVK
     Indication: Crohn^s disease
     Dosage: 40 MILLIGRAM, EVERY WEEK
     Route: 058
     Dates: start: 20220908

REACTIONS (4)
  - Hospitalisation [Unknown]
  - Amnesia [Unknown]
  - Diarrhoea [Unknown]
  - Product dose omission issue [Unknown]
